FAERS Safety Report 19601987 (Version 1)
Quarter: 2021Q3

REPORT INFORMATION
  Report Type: Spontaneous
  Country: IN (occurrence: IN)
  Receive Date: 20210722
  Receipt Date: 20210722
  Transmission Date: 20211014
  Serious: Yes (Other)
  Sender: FDA-Public Use
  Company Number: IN-BAXTER-2021BAX021179

PATIENT
  Age: 8 Year
  Sex: Male

DRUGS (3)
  1. AMIKACIN. [Concomitant]
     Active Substance: AMIKACIN
     Indication: MYCOBACTERIUM ABSCESSUS INFECTION
     Route: 065
     Dates: start: 201909
  2. LEVOX [Suspect]
     Active Substance: LEVOFLOXACIN
     Indication: EVIDENCE BASED TREATMENT
     Route: 065
  3. LINEZOX [Suspect]
     Active Substance: LINEZOLID
     Indication: MYCOBACTERIUM ABSCESSUS INFECTION
     Route: 065
     Dates: start: 201909

REACTIONS (2)
  - Myelosuppression [Unknown]
  - Tenosynovitis [Recovered/Resolved]

NARRATIVE: CASE EVENT DATE: 2019
